FAERS Safety Report 13281736 (Version 3)
Quarter: 2019Q2

REPORT INFORMATION
  Report Type: Spontaneous
  Country: US (occurrence: US)
  Receive Date: 20170301
  Receipt Date: 20190411
  Transmission Date: 20190711
  Serious: No
  Sender: FDA-Public Use
  Company Number: US-PFIZER INC-2017081676

PATIENT
  Age: 72 Year
  Sex: Female

DRUGS (4)
  1. KEFLEX [Suspect]
     Active Substance: CEPHALEXIN
     Dosage: UNK
  2. SPIRONOLACTONE. [Suspect]
     Active Substance: SPIRONOLACTONE
     Dosage: UNK
  3. NIACIN. [Suspect]
     Active Substance: NIACIN
     Dosage: UNK
  4. TOSITUMOMAB [Suspect]
     Active Substance: TOSITUMOMAB
     Dosage: UNK

REACTIONS (1)
  - Drug hypersensitivity [Unknown]
